FAERS Safety Report 20869671 (Version 1)
Quarter: 2022Q2

REPORT INFORMATION
  Report Type: Spontaneous
  Country: FR (occurrence: FR)
  Receive Date: 20220525
  Receipt Date: 20220525
  Transmission Date: 20220721
  Serious: Yes (Life-Threatening)
  Sender: FDA-Public Use
  Company Number: None

PATIENT
  Age: 40 Year
  Sex: Female
  Weight: 144 kg

DRUGS (9)
  1. PRIVIGEN [Suspect]
     Active Substance: HUMAN IMMUNOGLOBULIN G
     Indication: Multisystem inflammatory syndrome in adults
     Dosage: 100 MILLIGRAM, QD
     Route: 042
     Dates: start: 20220210, end: 20220211
  2. SUFENTA [Suspect]
     Active Substance: SUFENTANIL CITRATE
     Indication: Sedation
     Dosage: UNK
     Route: 042
     Dates: start: 20220216, end: 20220216
  3. STROMECTOL [Suspect]
     Active Substance: IVERMECTIN
     Indication: Prophylaxis
     Dosage: 24 MILLIGRAM, SINGLE
     Route: 042
     Dates: start: 20220214, end: 20220214
  4. PIPERACILLIN SODIUM\TAZOBACTAM SODIUM [Suspect]
     Active Substance: PIPERACILLIN SODIUM\TAZOBACTAM SODIUM
     Indication: Distributive shock
     Dosage: 4 GRAM, QID (4 G EVERY 8H FOR 10 DAYS)
     Route: 042
     Dates: start: 20220210, end: 20220220
  5. MORPHINE [Suspect]
     Active Substance: MORPHINE
     Indication: Analgesic therapy
     Dosage: 2 MILLIGRAM, PRN
     Route: 042
     Dates: start: 20220218, end: 20220224
  6. IOMERON [Suspect]
     Active Substance: IOMEPROL
     Indication: Computerised tomogram
     Dosage: 1 DOSAGE FORM
     Route: 042
     Dates: start: 20220215, end: 20220215
  7. PIPERACILLIN SODIUM\TAZOBACTAM SODIUM [Suspect]
     Active Substance: PIPERACILLIN SODIUM\TAZOBACTAM SODIUM
     Indication: Sepsis
     Dosage: START DATE: 10-MAR-2022, STOP DATE: 10-MAR-2022; 4 GRAM, QID
     Route: 042
  8. IOMERON [Suspect]
     Active Substance: IOMEPROL
     Indication: Computerised tomogram
     Dosage: START DATE: 10-MAR-2022, STOP DATE: 10-MAR-2022, 1 DOSAGE FORM
     Route: 042
  9. DOXYCYCLINE [Suspect]
     Active Substance: DOXYCYCLINE
     Indication: Distributive shock
     Dosage: 200 MILLIGRAM, QD
     Route: 048
     Dates: start: 20220211, end: 20220217

REACTIONS (5)
  - Rash maculo-papular [Recovered/Resolved]
  - Anaphylactic reaction [Recovered/Resolved]
  - Rash [Recovered/Resolved]
  - No adverse event [Unknown]
  - Off label use [Unknown]

NARRATIVE: CASE EVENT DATE: 20220219
